FAERS Safety Report 5494392-2 (Version None)
Quarter: 2007Q4

REPORT INFORMATION
  Report Type: 
  Country: None (occurrence: None)
  Receive Date: 20071015
  Receipt Date: 20070607
  Transmission Date: 20080405
  Serious: Yes (Other)
  Sender: FDA-Public Use
  Company Number: S07-USA-02489-01

PATIENT
  Age: 41 Year
  Sex: Female

DRUGS (10)
  1. LEXAPRO [Suspect]
     Indication: ANXIETY
     Dosage: 5 MG QD PO
     Route: 048
     Dates: start: 20070531, end: 20070715
  2. LEXAPRO [Suspect]
     Indication: DEPRESSION
     Dosage: 5 MG QD PO
     Route: 048
     Dates: start: 20070531, end: 20070715
  3. LEXAPRO [Suspect]
     Indication: ANXIETY
     Dosage: 10 MG QD PO
     Route: 048
     Dates: start: 20070716
  4. LEXAPRO [Suspect]
     Indication: DEPRESSION
     Dosage: 10 MG QD PO
     Route: 048
     Dates: start: 20070716
  5. HUMALOG [Concomitant]
  6. LANTUS [Concomitant]
  7. GLUCOPHAGE [Concomitant]
  8. BENICAR [Concomitant]
  9. PRAVACHOL [Concomitant]
  10. INHALERS (NOS) [Concomitant]

REACTIONS (1)
  - HYPOGLYCAEMIA [None]
